FAERS Safety Report 13493748 (Version 4)
Quarter: 2017Q3

REPORT INFORMATION
  Report Type: Spontaneous
  Country: KR (occurrence: KR)
  Receive Date: 20170427
  Receipt Date: 20170801
  Transmission Date: 20171127
  Serious: Yes (Hospitalization, Other)
  Sender: FDA-Public Use
  Company Number: KR-009507513-1704KOR012811

PATIENT
  Age: 82 Year
  Sex: Female
  Weight: 51.3 kg

DRUGS (33)
  1. EMEND (FOSAPREPITANT DIMEGLUMINE) [Suspect]
     Active Substance: FOSAPREPITANT DIMEGLUMINE
     Dosage: 150 MG, ONCE
     Route: 042
     Dates: start: 20160816, end: 20160816
  2. DEXAMETHASONE SODIUM PHOSPHATE. [Concomitant]
     Active Substance: DEXAMETHASONE SODIUM PHOSPHATE
     Dosage: 40 MG, QD, STRENGTH: 5 MG/ML
     Route: 042
     Dates: start: 20160910, end: 20160913
  3. ALOXI [Concomitant]
     Active Substance: PALONOSETRON HYDROCHLORIDE
     Dosage: 0.25 MG, ONCE
     Route: 042
     Dates: start: 20160816, end: 20160816
  4. URSA TABLETS [Concomitant]
     Indication: PROPHYLAXIS
     Dosage: 1 TABLET (100 MG), TID
     Route: 048
     Dates: end: 20160727
  5. LASIX [Concomitant]
     Active Substance: FUROSEMIDE
     Dosage: 20 MG, ONCE, STRENGTH: 20 MG/2ML
     Route: 042
     Dates: start: 20160919, end: 20160919
  6. CISPLATIN. [Concomitant]
     Active Substance: CISPLATIN
     Dosage: 73.5 MG, ONCE, CYCLE 2
     Route: 042
     Dates: start: 20160816, end: 20160816
  7. CISPLATIN. [Concomitant]
     Active Substance: CISPLATIN
     Dosage: 73.5 MG, ONCE, CYCLE 3
     Route: 042
     Dates: start: 20160816, end: 20160816
  8. CYTARABINE. [Concomitant]
     Active Substance: CYTARABINE
     Dosage: 2950 MG, ONCE, CYCLE 2
     Route: 042
     Dates: start: 20160817, end: 20160817
  9. LEVOPLUS (LEVOFLOXACIN) [Concomitant]
     Active Substance: LEVOFLOXACIN
     Dosage: 1 TABLET (750 MG), QD
     Route: 048
     Dates: start: 20160913, end: 20160919
  10. MEGACE [Concomitant]
     Active Substance: MEGESTROL ACETATE
     Indication: PROPHYLAXIS
     Dosage: 5 ML, QD
     Route: 048
     Dates: start: 20160717, end: 20160920
  11. ULCERLMIN [Concomitant]
     Active Substance: SUCRALFATE
     Indication: PROPHYLAXIS
     Dosage: 15 ML, QID, STRENGTH: 1 G/15 ML
     Route: 048
     Dates: end: 20160811
  12. ULCERLMIN [Concomitant]
     Active Substance: SUCRALFATE
     Dosage: 15 ML, QID, STRENGTH: 1 G/15 ML
     Route: 048
     Dates: start: 20160920, end: 20160923
  13. EMEND (FOSAPREPITANT DIMEGLUMINE) [Suspect]
     Active Substance: FOSAPREPITANT DIMEGLUMINE
     Indication: PROPHYLAXIS OF NAUSEA AND VOMITING
     Dosage: 150 MG, ONCE
     Route: 042
     Dates: start: 20160722, end: 20160722
  14. CISPLATIN. [Concomitant]
     Active Substance: CISPLATIN
     Indication: CHEMOTHERAPY
     Dosage: 73.5 MG, ONCE, CYCLE 1
     Route: 042
     Dates: start: 20160722, end: 20160722
  15. PANTOLINE TABLETS [Concomitant]
     Indication: PROPHYLAXIS
     Dosage: 1 TABLET (20 MG), QD
     Route: 048
     Dates: start: 20160722, end: 20160723
  16. PANTOLINE TABLETS [Concomitant]
     Dosage: 1 TABLET (20 MG), QD
     Route: 048
     Dates: start: 20160909, end: 20160920
  17. MUCOSTA [Concomitant]
     Active Substance: REBAMIPIDE
     Indication: PROPHYLAXIS
     Dosage: 1 TABLET (100 MG), TID
     Route: 048
     Dates: end: 20160908
  18. ALOXI [Concomitant]
     Active Substance: PALONOSETRON HYDROCHLORIDE
     Indication: ANTIEMETIC SUPPORTIVE CARE
     Dosage: 0.25 MG, ONCE
     Route: 042
     Dates: start: 20160722, end: 20160722
  19. CYTARABINE. [Concomitant]
     Active Substance: CYTARABINE
     Indication: CHEMOTHERAPY
     Dosage: 2950 MG, ONCE, CYCLE 1
     Route: 042
     Dates: start: 20160723, end: 20160723
  20. CYTARABINE. [Concomitant]
     Active Substance: CYTARABINE
     Dosage: 2950 MG, ONCE, CYCLE 3
     Route: 042
     Dates: start: 20160911, end: 20160911
  21. DEXAMETHASONE SODIUM PHOSPHATE. [Concomitant]
     Active Substance: DEXAMETHASONE SODIUM PHOSPHATE
     Indication: ANTIEMETIC SUPPORTIVE CARE
     Dosage: 40 MG, QD, STRENGTH: 5 MG/ML
     Route: 042
     Dates: start: 20160722, end: 20160725
  22. DEXAMETHASONE SODIUM PHOSPHATE. [Concomitant]
     Active Substance: DEXAMETHASONE SODIUM PHOSPHATE
     Dosage: 40 MG, QD, STRENGTH: 5 MG/ML
     Route: 042
     Dates: start: 20160816, end: 20160819
  23. LASIX [Concomitant]
     Active Substance: FUROSEMIDE
     Dosage: 20 MG, ONCE, STRENGTH: 20 MG/2ML
     Route: 042
     Dates: start: 20160913, end: 20160913
  24. PANTOLINE TABLETS [Concomitant]
     Indication: PROPHYLAXIS
     Dosage: 1 TABLET (40 MG), QD
     Route: 048
     Dates: end: 20160908
  25. LEGALON [Concomitant]
     Active Substance: MILK THISTLE
     Indication: PROPHYLAXIS
     Dosage: 1 TABLET (140), TID
     Route: 048
     Dates: end: 20160727
  26. EMEND (FOSAPREPITANT DIMEGLUMINE) [Suspect]
     Active Substance: FOSAPREPITANT DIMEGLUMINE
     Dosage: 150 MG, ONCE
     Route: 042
     Dates: start: 20160910, end: 20160910
  27. LEVOPLUS (LEVOFLOXACIN) [Concomitant]
     Active Substance: LEVOFLOXACIN
     Indication: PROPHYLAXIS
     Dosage: 1 TABLET (750 MG), ONCE
     Route: 048
     Dates: start: 20160801, end: 20160801
  28. MEPERIDINE HYDROCHLORIDE. [Concomitant]
     Active Substance: MEPERIDINE HYDROCHLORIDE
     Indication: PAIN PROPHYLAXIS
     Dosage: 25 MG, ONCE, STRENGTH: 25 MG/0.5 ML
     Route: 042
     Dates: start: 20160727, end: 20160727
  29. CISPLATIN. [Concomitant]
     Active Substance: CISPLATIN
     Dosage: 73.5 MG, ONCE, CYCLE 4
     Route: 042
     Dates: start: 20160910, end: 20160910
  30. ALOXI [Concomitant]
     Active Substance: PALONOSETRON HYDROCHLORIDE
     Dosage: 0.25 MG, ONCE
     Route: 042
     Dates: start: 20160910, end: 20160910
  31. LASIX [Concomitant]
     Active Substance: FUROSEMIDE
     Indication: PROPHYLAXIS
     Dosage: 20 MG, ONCE, STRENGTH: 20 MG/2ML
     Route: 042
     Dates: start: 20160801, end: 20160801
  32. BETALOC [Concomitant]
     Active Substance: METOPROLOL TARTRATE
     Indication: HYPERTENSION
     Dosage: 1 TABLET, QD
     Route: 048
  33. PANTOLINE TABLETS [Concomitant]
     Dosage: 1 TABLET (20 MG), ONCE
     Route: 048
     Dates: start: 20160816, end: 20160816

REACTIONS (7)
  - Thrombocytopenia [Not Recovered/Not Resolved]
  - Pyrexia [Recovered/Resolved]
  - Diarrhoea [Recovered/Resolved]
  - Thrombocytopenia [Recovered/Resolved]
  - Melaena [Recovered/Resolved]
  - Thrombocytopenia [Recovered/Resolved]
  - Neutropenia [Recovered/Resolved]

NARRATIVE: CASE EVENT DATE: 20160801
